FAERS Safety Report 15556642 (Version 1)
Quarter: 2018Q4

REPORT INFORMATION
  Report Type: Spontaneous
  Country: CA (occurrence: CA)
  Receive Date: 20181026
  Receipt Date: 20181026
  Transmission Date: 20190205
  Serious: Yes (Other)
  Sender: FDA-Public Use
  Company Number: CA-TEVA-2018-CA-964864

PATIENT
  Age: 80 Year
  Sex: Female

DRUGS (11)
  1. PREVACID [Concomitant]
     Active Substance: LANSOPRAZOLE
  2. CODEINE PHOSPHATE [Concomitant]
     Active Substance: CODEINE PHOSPHATE
  3. ONGLYZA [Concomitant]
     Active Substance: SAXAGLIPTIN HYDROCHLORIDE
  4. PLAVIX [Concomitant]
     Active Substance: CLOPIDOGREL BISULFATE
  5. RATIO-ATENOLOL [Suspect]
     Active Substance: ATENOLOL
     Indication: CORONARY ARTERY DISEASE
     Dosage: 50 MILLIGRAM DAILY;
  6. DIOVAN 80MG [Concomitant]
  7. LODALIS FILM-COATED TABLETS [Concomitant]
  8. FERROUS FUMARATE [Concomitant]
     Active Substance: FERROUS FUMARATE
  9. ACTONEL [Concomitant]
     Active Substance: RISEDRONATE SODIUM
  10. FLONASE ALLERGY RELIEF [Concomitant]
     Active Substance: FLUTICASONE PROPIONATE
  11. NITROLINGUAL PUMPSPRAY [Concomitant]
     Active Substance: NITROGLYCERIN

REACTIONS (4)
  - Dyspepsia [Unknown]
  - Chest discomfort [Unknown]
  - Dyspnoea [Unknown]
  - Product substitution issue [Unknown]
